FAERS Safety Report 24300565 (Version 1)
Quarter: 2024Q3

REPORT INFORMATION
  Report Type: Spontaneous
  Country: US (occurrence: US)
  Receive Date: 20240910
  Receipt Date: 20240910
  Transmission Date: 20241016
  Serious: No
  Sender: TEVA
  Company Number: US-TEVA-VS-3236289

PATIENT

DRUGS (2)
  1. UZEDY [Suspect]
     Active Substance: RISPERIDONE
     Indication: Product used for unknown indication
     Dosage: 50/0.14 MG/ML
     Route: 065
  2. UZEDY [Suspect]
     Active Substance: RISPERIDONE

REACTIONS (2)
  - Injection site discharge [Unknown]
  - Circumstance or information capable of leading to medication error [Unknown]
